FAERS Safety Report 6426012-4 (Version None)
Quarter: 2009Q4

REPORT INFORMATION
  Report Type: 
  Country: None (occurrence: None)
  Receive Date: 20091104
  Receipt Date: 20091026
  Transmission Date: 20100525
  Serious: Yes (Other)
  Sender: FDA-Public Use
  Company Number: GB-RANBAXY-2009RR-28900

PATIENT
  Sex: Female

DRUGS (1)
  1. PARACETAMOL [Suspect]
     Dosage: 1000 MG, UNK
     Route: 048
     Dates: start: 20090925, end: 20090925

REACTIONS (4)
  - PARAESTHESIA ORAL [None]
  - PRODUCT QUALITY ISSUE [None]
  - TONGUE DISCOLOURATION [None]
  - TOOTH DISCOLOURATION [None]
